FAERS Safety Report 8545072-8 (Version None)
Quarter: 2012Q3

REPORT INFORMATION
  Report Type: 
  Country: None (occurrence: None)
  Receive Date: 20120727
  Receipt Date: 20100305
  Transmission Date: 20120928
  Serious: Yes (Death)
  Sender: FDA-Public Use
  Company Number: NZ-ROCHE-1092063

PATIENT

DRUGS (2)
  1. COPEGUS [Suspect]
     Indication: HEPATITIS C
     Route: 065
  2. PEGASYS [Suspect]
     Indication: HEPATITIS C
     Route: 065

REACTIONS (1)
  - DEATH [None]
